FAERS Safety Report 8849901 (Version 1)
Quarter: 2012Q4

REPORT INFORMATION
  Report Type: 
  Country: US (occurrence: US)
  Receive Date: 20121019
  Receipt Date: 20121019
  Transmission Date: 20130627
  Serious: Yes (Death, Hospitalization, Other)
  Sender: FDA-Public Use
  Company Number: US-ROCHE-1136969

PATIENT
  Sex: Male

DRUGS (6)
  1. XELODA [Suspect]
     Indication: PRODUCT USED FOR UNKNOWN INDICATION
     Dosage: 2 tablets of 500 mg and 2 tablets of 150 mg
     Route: 065
     Dates: start: 19990824
  2. EPIRUBICIN [Concomitant]
  3. OXALIPLATIN [Concomitant]
  4. GEMCITABINE [Concomitant]
  5. CISPLATIN [Concomitant]
  6. ATIVAN [Concomitant]
     Route: 042

REACTIONS (11)
  - Hepatorenal failure [Fatal]
  - Gastric cancer [Fatal]
  - Abdominal pain [Unknown]
  - Convulsion [Unknown]
  - Metastases to gastrointestinal tract [Unknown]
  - Azotaemia [Unknown]
  - Encephalopathy [Unknown]
  - Hypoxia [Unknown]
  - Hypotension [Unknown]
  - Diarrhoea [Recovering/Resolving]
  - Nausea [Unknown]
